FAERS Safety Report 7973780-6 (Version None)
Quarter: 2011Q4

REPORT INFORMATION
  Report Type: 
  Country: None (occurrence: None)
  Receive Date: 20111129
  Receipt Date: 20110718
  Transmission Date: 20120403
  Serious: No
  Sender: FDA-Public Use
  Company Number: PHHY2011US19740

PATIENT
  Age: 23 Year
  Sex: Male

DRUGS (7)
  1. CARBATROL [Concomitant]
  2. AFINITOR [Suspect]
     Indication: TUBEROUS SCLEROSIS
     Dosage: 10 MG, ORAL
     Route: 048
     Dates: start: 20110129
  3. AFINITOR [Suspect]
     Indication: ASTROCYTOMA
     Dosage: 10 MG, ORAL
     Route: 048
     Dates: start: 20110129
  4. RISPERDAL [Concomitant]
  5. DITROPAN [Concomitant]
  6. LEXAPRO [Concomitant]
  7. MIRALAX [Concomitant]

REACTIONS (3)
  - ONYCHOCLASIS [None]
  - ACNE [None]
  - PAIN IN EXTREMITY [None]
